FAERS Safety Report 25918581 (Version 1)
Quarter: 2025Q4

REPORT INFORMATION
  Report Type: Spontaneous
  Country: US (occurrence: None)
  Receive Date: 20251010
  Receipt Date: 20251010
  Transmission Date: 20260118
  Serious: Yes (Other)
  Sender: FDA-CTU
  Company Number: None

PATIENT
  Age: 51 Year
  Sex: Female
  Weight: 67.5 kg

DRUGS (1)
  1. REMICADE [Suspect]
     Active Substance: INFLIXIMAB
     Indication: Sarcoidosis
     Dosage: OTHER FREQUENCY : 0, 2, 6 THEN Q8W;?
     Route: 041
     Dates: start: 20250724, end: 20251010

REACTIONS (4)
  - Infusion related reaction [None]
  - Documented hypersensitivity to administered product [None]
  - Blood pressure increased [None]
  - Dizziness [None]

NARRATIVE: CASE EVENT DATE: 20251010
